FAERS Safety Report 4786908-6 (Version None)
Quarter: 2005Q4

REPORT INFORMATION
  Report Type: 
  Country: None (occurrence: None)
  Receive Date: 20051004
  Receipt Date: 20050919
  Transmission Date: 20060501
  Serious: Yes (Other)
  Sender: FDA-Public Use
  Company Number: PHFR2005GB03126

PATIENT
  Age: 64 Year
  Sex: Female

DRUGS (2)
  1. FEMARA [Suspect]
     Indication: BREAST CANCER
     Route: 048
     Dates: start: 20050901
  2. AMITRIPTYLINE HCL [Suspect]
     Indication: URINARY TRACT DISORDER
     Dosage: 10MG/DAY
     Route: 065
     Dates: end: 20050901

REACTIONS (7)
  - ANGER [None]
  - CONSTIPATION [None]
  - DEPRESSION SUICIDAL [None]
  - DRUG INTERACTION [None]
  - DRY MOUTH [None]
  - INSOMNIA [None]
  - PSYCHOMOTOR HYPERACTIVITY [None]
